FAERS Safety Report 13263821 (Version 1)
Quarter: 2017Q1

REPORT INFORMATION
  Report Type: Spontaneous
  Country: US (occurrence: US)
  Receive Date: 20170223
  Receipt Date: 20170223
  Transmission Date: 20170428
  Serious: No
  Sender: FDA-Public Use
  Company Number: US-PFIZER INC-2017077527

PATIENT
  Sex: Male

DRUGS (1)
  1. SUTENT [Suspect]
     Active Substance: SUNITINIB MALATE
     Indication: METASTATIC RENAL CELL CARCINOMA
     Dosage: 50 MG, CYCLIC (28 DAYS ON/14 DAYS OFF)
     Dates: start: 201611

REACTIONS (6)
  - Flatulence [Unknown]
  - Gastric dilatation [Recovered/Resolved]
  - Abdominal discomfort [Recovered/Resolved]
  - Dry skin [Unknown]
  - Protein total decreased [Unknown]
  - Constipation [Recovered/Resolved]
